FAERS Safety Report 7529213-7 (Version None)
Quarter: 2011Q2

REPORT INFORMATION
  Report Type: 
  Country: None (occurrence: None)
  Receive Date: 20110607
  Receipt Date: 20110530
  Transmission Date: 20111010
  Serious: Yes (Hospitalization)
  Sender: FDA-Public Use
  Company Number: GB-SANOFI-AVENTIS-2011SA034085

PATIENT
  Age: 73 Year
  Sex: Male

DRUGS (8)
  1. DOCETAXEL [Suspect]
     Indication: PROSTATE CANCER
     Route: 041
     Dates: start: 20110503, end: 20110503
  2. METOCLOPRAMIDE [Concomitant]
     Indication: NAUSEA
     Dosage: 10-20 MG
     Route: 048
  3. AMLODIPINE [Concomitant]
     Indication: HYPERTENSION
     Route: 048
     Dates: end: 20110503
  4. CETIRIZINE HCL [Concomitant]
     Route: 048
  5. PREDNISONE [Suspect]
     Indication: PROSTATE CANCER
     Dates: start: 20110503
  6. OMEPRAZOLE [Concomitant]
     Route: 048
     Dates: start: 20110505
  7. BETAHISTINE [Concomitant]
     Indication: VERTIGO
     Route: 048
  8. BLINDED THERAPY [Suspect]
     Indication: PROSTATE CANCER
     Route: 048
     Dates: start: 20110503

REACTIONS (6)
  - DIZZINESS [None]
  - PYREXIA [None]
  - FALL [None]
  - NEUTROPENIC SEPSIS [None]
  - DIARRHOEA [None]
  - RASH [None]
